FAERS Safety Report 5609763-0 (Version None)
Quarter: 2008Q1

REPORT INFORMATION
  Report Type: 
  Country: None (occurrence: None)
  Receive Date: 20080131
  Receipt Date: 20071026
  Transmission Date: 20080703
  Serious: No
  Sender: FDA-Public Use
  Company Number: US-BAYER-200713517BCC

PATIENT
  Age: 73 Year
  Sex: Female
  Weight: 68 kg

DRUGS (7)
  1. ALEVE [Suspect]
     Indication: ARTHRALGIA
     Dosage: TOTAL DAILY DOSE: 1100 MG  UNIT DOSE: 220 MG
     Route: 048
     Dates: start: 20071024, end: 20071026
  2. TOPROL-XL [Concomitant]
  3. AGGRENOX [Concomitant]
  4. LIPITOR [Concomitant]
  5. SYNTHROID [Concomitant]
  6. BENAZEPRIL HYDROCHLORIDE [Concomitant]
  7. FOSAMAX [Concomitant]

REACTIONS (2)
  - PRURITUS GENERALISED [None]
  - STOMACH DISCOMFORT [None]
